FAERS Safety Report 11927466 (Version 1)
Quarter: 2016Q1

REPORT INFORMATION
  Report Type: Spontaneous
  Country: CA (occurrence: CA)
  Receive Date: 20160119
  Receipt Date: 20160119
  Transmission Date: 20160526
  Serious: Yes (Death, Life-Threatening)
  Sender: FDA-Public Use
  Company Number: CA-TEVA-626455ACC

PATIENT
  Age: 1 Month
  Sex: Female

DRUGS (3)
  1. VITAMIN D [Concomitant]
     Active Substance: CHOLECALCIFEROL
  2. AZITHROMYCIN ANHYDROUS. [Suspect]
     Active Substance: AZITHROMYCIN ANHYDROUS
     Indication: UREAPLASMA INFECTION
     Dosage: 216 MILLIGRAM DAILY;
     Route: 042
  3. MORPHINE [Concomitant]
     Active Substance: MORPHINE

REACTIONS (7)
  - Tachycardia [Fatal]
  - Overdose [Fatal]
  - Ventricular fibrillation [Fatal]
  - Arrhythmia [Fatal]
  - Cardiac arrest [Fatal]
  - Premature baby [Fatal]
  - Incorrect dose administered [Fatal]
